FAERS Safety Report 7980931-6 (Version None)
Quarter: 2011Q4

REPORT INFORMATION
  Report Type: 
  Country: None (occurrence: None)
  Receive Date: 20111215
  Receipt Date: 20111207
  Transmission Date: 20120403
  Serious: Yes (Hospitalization)
  Sender: FDA-Public Use
  Company Number: US-BIOGENIDEC-2011BI046698

PATIENT
  Age: 57 Year
  Sex: Female

DRUGS (2)
  1. TYSABRI [Suspect]
     Indication: MULTIPLE SCLEROSIS
     Route: 042
     Dates: start: 20080312, end: 20111101
  2. OPIATES(NOS) [Concomitant]
     Indication: PAIN

REACTIONS (3)
  - LARGE INTESTINE PERFORATION [None]
  - CONSTIPATION [None]
  - INFECTIOUS PERITONITIS [None]
